FAERS Safety Report 20767365 (Version 1)
Quarter: 2022Q2

REPORT INFORMATION
  Report Type: Spontaneous
  Country: SE (occurrence: SE)
  Receive Date: 20220429
  Receipt Date: 20220429
  Transmission Date: 20220720
  Serious: Yes (Other)
  Sender: FDA-Public Use
  Company Number: SE-MYLANLABS-2022M1027006

PATIENT
  Age: 70 Year
  Sex: Female

DRUGS (2)
  1. AZACITIDINE [Suspect]
     Active Substance: AZACITIDINE
     Indication: Myelodysplastic syndrome
     Dosage: 100 MILLIGRAM/SQ. METER, CYCLE FOR 5 DAYS IN A CYCLE; ?MONOTHERAPY DOSAGE NOT STATED
     Route: 065
  2. VENETOCLAX [Suspect]
     Active Substance: VENETOCLAX
     Indication: Myelodysplastic syndrome
     Dosage: 400 MILLIGRAM, CYCLE, FOR 7 DAYS IN CYCLE; RECEIVED 1 CYCLE
     Route: 065

REACTIONS (6)
  - Epstein-Barr virus infection reactivation [Unknown]
  - Cytomegalovirus infection reactivation [Unknown]
  - Infection [Unknown]
  - BK virus infection [Unknown]
  - Human herpesvirus 6 infection reactivation [Unknown]
  - Intentional product use issue [Unknown]
